FAERS Safety Report 15152522 (Version 3)
Quarter: 2018Q3

REPORT INFORMATION
  Report Type: Report from Study
  Country: CA (occurrence: CA)
  Receive Date: 20180717
  Receipt Date: 20180912
  Transmission Date: 20181010
  Serious: Yes (Hospitalization, Other)
  Sender: FDA-Public Use
  Company Number: CA-ROCHE-1880356

PATIENT
  Age: 83 Year
  Sex: Male
  Weight: 85 kg

DRUGS (9)
  1. ESBRIET [Suspect]
     Active Substance: PIRFENIDONE
     Dosage: 3 CAPSULES TID.
     Route: 048
     Dates: start: 20170208
  2. OXYGEN. [Concomitant]
     Active Substance: OXYGEN
     Dosage: 5 L UPON EXERTION
     Route: 065
  3. RABEPRAZOLE [Concomitant]
     Active Substance: RABEPRAZOLE
  4. METOPROLOL. [Concomitant]
     Active Substance: METOPROLOL
  5. VALSARTAN. [Concomitant]
     Active Substance: VALSARTAN
  6. ATORVASTATIN [Concomitant]
     Active Substance: ATORVASTATIN
  7. ESBRIET [Suspect]
     Active Substance: PIRFENIDONE
     Indication: IDIOPATHIC PULMONARY FIBROSIS
     Route: 048
     Dates: start: 20170110
  8. ESBRIET [Suspect]
     Active Substance: PIRFENIDONE
     Route: 048
     Dates: start: 201701
  9. ACETYLSALICYLIC ACID [Concomitant]
     Active Substance: ASPIRIN

REACTIONS (13)
  - Cardiac disorder [Not Recovered/Not Resolved]
  - Pruritus [Unknown]
  - Cough [Unknown]
  - Vomiting [Unknown]
  - Decreased appetite [Not Recovered/Not Resolved]
  - Asthenia [Unknown]
  - Ill-defined disorder [Not Recovered/Not Resolved]
  - Hypoxia [Unknown]
  - Tuberculosis [Not Recovered/Not Resolved]
  - Weight increased [Unknown]
  - Nausea [Recovering/Resolving]
  - Insomnia [Not Recovered/Not Resolved]
  - Fall [Unknown]

NARRATIVE: CASE EVENT DATE: 2017
